FAERS Safety Report 7611436-X (Version None)
Quarter: 2011Q3

REPORT INFORMATION
  Report Type: 
  Country: None (occurrence: None)
  Receive Date: 20110715
  Receipt Date: 20110701
  Transmission Date: 20111222
  Serious: Yes (Hospitalization)
  Sender: FDA-Public Use
  Company Number: US-ELI_LILLY_AND_COMPANY-US201008007584

PATIENT
  Sex: Female

DRUGS (10)
  1. PLAVIX [Concomitant]
  2. PRAVACHOL [Concomitant]
  3. NEXIUM [Concomitant]
  4. FORTEO [Suspect]
     Dosage: 20 UG, QD
     Route: 065
  5. NAMENDA [Concomitant]
  6. SYNTHROID [Concomitant]
  7. FORTEO [Suspect]
     Indication: OSTEOPOROSIS
     Dosage: 20 UG, DAILY (1/D)
     Route: 065
     Dates: start: 20100801
  8. FORTEO [Suspect]
     Dosage: 20 UG, DAILY (1/D)
     Route: 065
     Dates: end: 20101014
  9. FORTEO [Suspect]
     Dosage: 20 UG, DAILY (1/D)
     Route: 065
     Dates: start: 20101116
  10. FORTEO [Suspect]
     Dosage: 20 UG, QD
     Route: 065
     Dates: end: 20110606

REACTIONS (9)
  - INJECTION SITE HAEMATOMA [None]
  - MUSCLE SPASMS [None]
  - RENAL DISORDER [None]
  - BACK PAIN [None]
  - FATIGUE [None]
  - ABDOMINAL PAIN [None]
  - SLEEP DISORDER [None]
  - RENAL PAIN [None]
  - BLADDER DISORDER [None]
